FAERS Safety Report 15160464 (Version 7)
Quarter: 2018Q4

REPORT INFORMATION
  Report Type: Report from Study
  Country: US (occurrence: US)
  Receive Date: 20180718
  Receipt Date: 20181204
  Transmission Date: 20190204
  Serious: Yes (Hospitalization)
  Sender: FDA-Public Use
  Company Number: US-ACTELION-A-NJ2018-175637

PATIENT
  Age: 73 Year
  Sex: Female
  Weight: 54.88 kg

DRUGS (15)
  1. VENTAVIS [Suspect]
     Active Substance: ILOPROST
     Dosage: UNK, QID
     Route: 055
     Dates: start: 2013
  2. ASPIRIN. [Concomitant]
     Active Substance: ASPIRIN
     Dosage: 81 MG, QD
     Dates: start: 201804
  3. CALCIUM PLUS D3 [Concomitant]
     Dosage: 1 TABLET, QD
     Dates: start: 201804
  4. LETAIRIS [Concomitant]
     Active Substance: AMBRISENTAN
     Dosage: UNK
     Dates: end: 201807
  5. VENTAVIS [Suspect]
     Active Substance: ILOPROST
     Indication: PULMONARY ARTERIAL HYPERTENSION
     Dosage: 5.0 MCG, 6 TO 9 TIMES PER DAY
     Route: 055
  6. DILTIAZEM. [Concomitant]
     Active Substance: DILTIAZEM
  7. FOLIC ACID. [Concomitant]
     Active Substance: FOLIC ACID
     Dosage: 667 MCG, QD
     Dates: start: 2015
  8. SPIRIVA [Concomitant]
     Active Substance: TIOTROPIUM BROMIDE MONOHYDRATE
     Dosage: UNK, QD
  9. VENTAVIS [Suspect]
     Active Substance: ILOPROST
     Dosage: 5.0 MCG, 3 TO 9 TIMES PER DAY
     Route: 055
  10. LASIX [Concomitant]
     Active Substance: FUROSEMIDE
     Dosage: 10 MG, BID
     Dates: start: 201803
  11. POTASSIUM CHLORIDE. [Concomitant]
     Active Substance: POTASSIUM CHLORIDE
     Dosage: 10 MEQ, QD
     Dates: start: 201804
  12. OPSUMIT [Suspect]
     Active Substance: MACITENTAN
     Indication: PULMONARY ARTERIAL HYPERTENSION
     Dosage: 10 MG, QD
     Route: 048
     Dates: start: 201807
  13. ATORVASTATIN [Suspect]
     Active Substance: ATORVASTATIN
     Indication: PRODUCT USED FOR UNKNOWN INDICATION
     Dosage: 10 MG, QD
     Route: 048
     Dates: start: 201807
  14. MULTIVITAMIN [Concomitant]
     Active Substance: VITAMINS
     Dosage: 1 TABLET QD
  15. COLLAGEN [Concomitant]
     Active Substance: COLLAGEN
     Dosage: 1 TABLET, QD
     Dates: start: 201804

REACTIONS (9)
  - Syncope [Unknown]
  - Product dose omission [Recovered/Resolved]
  - Exercise tolerance decreased [Unknown]
  - Alopecia [Not Recovered/Not Resolved]
  - Chest injury [Unknown]
  - Malaise [Unknown]
  - Dyspnoea [Unknown]
  - Dehydration [Unknown]
  - Implantable cardiac monitor insertion [Unknown]

NARRATIVE: CASE EVENT DATE: 201808
